FAERS Safety Report 15780603 (Version 1)
Quarter: 2019Q1

REPORT INFORMATION
  Report Type: Spontaneous
  Country: IT (occurrence: IT)
  Receive Date: 20190102
  Receipt Date: 20190102
  Transmission Date: 20190417
  Serious: Yes (Hospitalization)
  Sender: FDA-Public Use
  Company Number: IT-ACCORD-099247

PATIENT
  Age: 84 Year
  Sex: Male
  Weight: 66 kg

DRUGS (12)
  1. KCL RETARD [Concomitant]
     Active Substance: POTASSIUM CHLORIDE
     Route: 048
  2. CARDIOASPIRIN [Suspect]
     Active Substance: ASPIRIN
     Indication: PROPHYLAXIS
     Dates: start: 20161220
  3. SPIRONOLACTONE. [Concomitant]
     Active Substance: SPIRONOLACTONE
     Route: 048
  4. FUROSEMIDE. [Concomitant]
     Active Substance: FUROSEMIDE
     Route: 048
  5. CLOPIDOGREL [Suspect]
     Active Substance: CLOPIDOGREL BISULFATE
     Indication: PROPHYLAXIS
     Dates: start: 20161220
  6. COUMADIN [Suspect]
     Active Substance: WARFARIN SODIUM
     Indication: PROPHYLAXIS
     Route: 048
  7. RAMIPRIL. [Concomitant]
     Active Substance: RAMIPRIL
     Route: 048
  8. ATORVASTATIN [Concomitant]
     Active Substance: ATORVASTATIN
     Route: 048
  9. TAMSULOSIN [Concomitant]
     Active Substance: TAMSULOSIN
     Route: 048
  10. PANTOPRAZOLE [Concomitant]
     Active Substance: PANTOPRAZOLE
     Route: 048
  11. DUTASTERIDE. [Concomitant]
     Active Substance: DUTASTERIDE
     Route: 048
  12. BISOPROLOL [Concomitant]
     Active Substance: BISOPROLOL
     Route: 048

REACTIONS (3)
  - Anaemia [Recovering/Resolving]
  - Rectal haemorrhage [Recovering/Resolving]
  - International normalised ratio increased [Recovering/Resolving]

NARRATIVE: CASE EVENT DATE: 20170121
